FAERS Safety Report 23618720 (Version 4)
Quarter: 2024Q3

REPORT INFORMATION
  Report Type: Spontaneous
  Country: CA (occurrence: CA)
  Receive Date: 20240311
  Receipt Date: 20240925
  Transmission Date: 20241016
  Serious: Yes (Other)
  Sender: PFIZER
  Company Number: CA-PFIZER INC-202300260189

PATIENT
  Age: 35 Year
  Sex: Female
  Weight: 80 kg

DRUGS (4)
  1. RUXIENCE [Suspect]
     Active Substance: RITUXIMAB-PVVR
     Indication: Multiple sclerosis
     Dosage: 1000 MG IV Q2 WEEKS X 2 DOSES THEN 1000 MG IV Q6 MONTHS
     Route: 042
     Dates: start: 20230824, end: 20230907
  2. RUXIENCE [Suspect]
     Active Substance: RITUXIMAB-PVVR
     Dosage: 1000 MG IV Q2 WEEKS X 2 DOSES THEN 1000 MG IV Q6 MONTHS
     Route: 042
     Dates: start: 20240306
  3. RUXIENCE [Suspect]
     Active Substance: RITUXIMAB-PVVR
     Dosage: 1000 MG, 28 WEEKS AND 1 DAY AFTER LAST TREATMENT (EVERY 6 MONTHS)
     Route: 042
     Dates: start: 20240919
  4. RUXIENCE [Suspect]
     Active Substance: RITUXIMAB-PVVR
     Dosage: 1000 MG, 28 WEEKS AND 1 DAY AFTER LAST TREATMENT (EVERY 6 MONTHS)
     Route: 042
     Dates: start: 20240919

REACTIONS (7)
  - Dysphagia [Recovered/Resolved with Sequelae]
  - Oropharyngeal pain [Recovered/Resolved with Sequelae]
  - Ear discomfort [Recovered/Resolved with Sequelae]
  - Oropharyngeal pain [Recovering/Resolving]
  - Rhinorrhoea [Recovering/Resolving]
  - Off label use [Unknown]
  - Inappropriate schedule of product administration [Unknown]

NARRATIVE: CASE EVENT DATE: 20240306
